FAERS Safety Report 10095319 (Version 2)
Quarter: 2014Q2

REPORT INFORMATION
  Report Type: Spontaneous
  Country: US (occurrence: US)
  Receive Date: 20140422
  Receipt Date: 20140422
  Transmission Date: 20141212
  Serious: No
  Sender: FDA-Public Use
  Company Number: US-GILEAD-2013-0073254

PATIENT
  Age: 46 Year
  Sex: Female

DRUGS (11)
  1. LETAIRIS [Suspect]
     Indication: PULMONARY ARTERIAL HYPERTENSION
     Dosage: 10 MG, QD
     Route: 048
     Dates: start: 201205, end: 20130406
  2. LETAIRIS [Suspect]
     Dosage: 5 MG, QD
     Route: 048
     Dates: start: 20130401, end: 20130405
  3. FUROSEMIDE [Concomitant]
  4. SPIRONOLACTONE [Concomitant]
  5. METOLAZONE [Concomitant]
  6. METOPROLOL [Concomitant]
  7. KCL [Concomitant]
  8. NORETHINDRONE                      /00044901/ [Concomitant]
  9. FERROUS SULFATE [Concomitant]
  10. FLUTICASONE                        /00972202/ [Concomitant]
  11. TYLENOL 8 HOUR [Concomitant]

REACTIONS (2)
  - Liver function test abnormal [Unknown]
  - Dizziness [Unknown]
